FAERS Safety Report 5670697-7 (Version None)
Quarter: 2008Q1

REPORT INFORMATION
  Report Type: 
  Country: None (occurrence: None)
  Receive Date: 20080317
  Receipt Date: 20080317
  Transmission Date: 20080703
  Serious: No
  Sender: FDA-Public Use
  Company Number: None

PATIENT
  Sex: Male
  Weight: 117.028 kg

DRUGS (4)
  1. LEVAQUIN [Suspect]
     Indication: BRONCHITIS
     Dosage: 500 MG 1/DAY PO
     Route: 048
     Dates: start: 20080206, end: 20080215
  2. LEVAQUIN [Suspect]
     Indication: SINUSITIS
     Dosage: 500 MG 1/DAY PO
     Route: 048
     Dates: start: 20080206, end: 20080215
  3. PREDNISONE [Suspect]
     Indication: BRONCHITIS
     Dosage: 10 MG 1/DAY PO
     Route: 048
     Dates: start: 20080211, end: 20080216
  4. PREDNISONE [Suspect]
     Indication: SINUSITIS
     Dosage: 10 MG 1/DAY PO
     Route: 048
     Dates: start: 20080211, end: 20080216

REACTIONS (1)
  - TENDON RUPTURE [None]
